FAERS Safety Report 22318150 (Version 1)
Quarter: 2023Q2

REPORT INFORMATION
  Report Type: Spontaneous
  Country: US (occurrence: US)
  Receive Date: 20230515
  Receipt Date: 20230515
  Transmission Date: 20230722
  Serious: No
  Sender: FDA-Public Use
  Company Number: US-ABBVIE-4761796

PATIENT
  Sex: Female

DRUGS (2)
  1. ORILISSA [Suspect]
     Active Substance: ELAGOLIX SODIUM
     Indication: Endometriosis
     Route: 048
  2. ORILISSA [Suspect]
     Active Substance: ELAGOLIX SODIUM
     Indication: Endometriosis
     Route: 048
     Dates: start: 202001, end: 202201

REACTIONS (8)
  - Endometriosis [Unknown]
  - Arthralgia [Unknown]
  - Night sweats [Unknown]
  - Insomnia [Unknown]
  - Major depression [Unknown]
  - Bone density abnormal [Unknown]
  - Generalised anxiety disorder [Unknown]
  - Hot flush [Unknown]
